FAERS Safety Report 13873240 (Version 1)
Quarter: 2017Q3

REPORT INFORMATION
  Report Type: Spontaneous
  Country: US (occurrence: US)
  Receive Date: 20170816
  Receipt Date: 20170816
  Transmission Date: 20171127
  Serious: Yes (Other)
  Sender: FDA-Public Use
  Company Number: US-PRODUCTLIFE GROUP-GTC2015000022

PATIENT
  Age: 6 Day

DRUGS (4)
  1. ATRYN [Suspect]
     Active Substance: ANTITHROMBIN ALFA
     Indication: OFF LABEL USE
  2. ATRYN [Suspect]
     Active Substance: ANTITHROMBIN ALFA
     Indication: DRUG ADMINISTERED TO PATIENT OF INAPPROPRIATE AGE
  3. ATRYN [Suspect]
     Active Substance: ANTITHROMBIN ALFA
     Indication: VENOUS THROMBOSIS
     Dosage: UNK
  4. HEPARIN LMW [Concomitant]
     Active Substance: UNSPECIFIED INGREDIENT
     Indication: VENOUS THROMBOSIS
     Dosage: UNK

REACTIONS (2)
  - Renal failure [Unknown]
  - Off label use [Unknown]
